FAERS Safety Report 8298970-7 (Version None)
Quarter: 2012Q2

REPORT INFORMATION
  Report Type: 
  Country: None (occurrence: None)
  Receive Date: 20120419
  Receipt Date: 20120410
  Transmission Date: 20120825
  Serious: Yes (Hospitalization, Other)
  Sender: FDA-Public Use
  Company Number: US-MERCK-1201USA02277

PATIENT
  Age: 75 Year
  Sex: Female
  Weight: 75 kg

DRUGS (2)
  1. FOSAMAX [Suspect]
     Route: 048
     Dates: start: 19990201
  2. FOSAMAX [Suspect]
     Indication: OSTEOPOROSIS
     Route: 048
     Dates: start: 20000314

REACTIONS (45)
  - ADENOIDAL DISORDER [None]
  - GASTROINTESTINAL DISORDER [None]
  - ARTHROPATHY [None]
  - DIVERTICULUM [None]
  - ILIUM FRACTURE [None]
  - SKELETAL INJURY [None]
  - MASS [None]
  - COMPRESSION FRACTURE [None]
  - HYPOTHYROIDISM [None]
  - URINARY INCONTINENCE [None]
  - RADICULOPATHY [None]
  - MOBILITY DECREASED [None]
  - GALLBLADDER DISORDER [None]
  - OSTEOARTHRITIS [None]
  - HERNIA [None]
  - GASTROOESOPHAGEAL REFLUX DISEASE [None]
  - SUBDURAL HAEMATOMA [None]
  - LOW TURNOVER OSTEOPATHY [None]
  - DEPRESSION [None]
  - DYSPHAGIA [None]
  - UPPER LIMB FRACTURE [None]
  - BREAST DISORDER [None]
  - FALL [None]
  - ATELECTASIS [None]
  - BONE LOSS [None]
  - HIATUS HERNIA [None]
  - SPINAL DECOMPRESSION [None]
  - LACUNAR INFARCTION [None]
  - SPINAL COMPRESSION FRACTURE [None]
  - UTERINE DISORDER [None]
  - HELICOBACTER INFECTION [None]
  - VERTEBRAL FORAMINAL STENOSIS [None]
  - SKIN LESION [None]
  - CEREBRAL ISCHAEMIA [None]
  - BONE DISORDER [None]
  - JOINT INJURY [None]
  - HAEMORRHAGE INTRACRANIAL [None]
  - CEREBRAL ATROPHY [None]
  - FEMUR FRACTURE [None]
  - TONSILLAR DISORDER [None]
  - ANXIETY [None]
  - HYPERTENSION [None]
  - SPONDYLOLISTHESIS [None]
  - SPINAL COLUMN STENOSIS [None]
  - LOWER RESPIRATORY TRACT INFECTION [None]
